FAERS Safety Report 6883032-3 (Version None)
Quarter: 2010Q3

REPORT INFORMATION
  Report Type: 
  Country: None (occurrence: None)
  Receive Date: 20100727
  Receipt Date: 20100715
  Transmission Date: 20110219
  Serious: Yes (Disabling)
  Sender: FDA-Public Use
  Company Number: 7011245

PATIENT
  Age: 50 Year
  Sex: Female

DRUGS (1)
  1. REBIF [Suspect]
     Indication: MULTIPLE SCLEROSIS
     Dosage: 44 MCG, SUBCUTANEOUS
     Route: 058
     Dates: start: 20000101, end: 20100101

REACTIONS (3)
  - ERYTHEMA [None]
  - RENAL FAILURE [None]
  - SKIN REACTION [None]
